FAERS Safety Report 10302919 (Version 1)
Quarter: 2014Q3

REPORT INFORMATION
  Report Type: Spontaneous
  Country: US (occurrence: US)
  Receive Date: 20140714
  Receipt Date: 20140714
  Transmission Date: 20150326
  Serious: Yes (Disabling)
  Sender: FDA-Public Use
  Company Number: US-ELI_LILLY_AND_COMPANY-US201407001652

PATIENT
  Sex: Female

DRUGS (8)
  1. VALSARTAN. [Concomitant]
     Active Substance: VALSARTAN
     Indication: BLOOD PRESSURE ABNORMAL
  2. HUMALOG [Suspect]
     Active Substance: INSULIN LISPRO
     Indication: TYPE 2 DIABETES MELLITUS
     Dosage: UNK, TID
     Route: 065
     Dates: start: 1999
  3. HUMIRA [Concomitant]
     Active Substance: ADALIMUMAB
  4. PREVACID [Concomitant]
     Active Substance: LANSOPRAZOLE
  5. METHOTREXATE [Concomitant]
     Active Substance: METHOTREXATE
  6. METOPROLOL [Concomitant]
     Active Substance: METOPROLOL
  7. NOVOLIN N [Concomitant]
     Active Substance: INSULIN HUMAN
  8. VICTOZA [Concomitant]
     Active Substance: LIRAGLUTIDE

REACTIONS (3)
  - Rheumatoid arthritis [Not Recovered/Not Resolved]
  - Visual impairment [Not Recovered/Not Resolved]
  - Psoriatic arthropathy [Not Recovered/Not Resolved]
